FAERS Safety Report 7342863-6 (Version None)
Quarter: 2011Q1

REPORT INFORMATION
  Report Type: 
  Country: None (occurrence: None)
  Receive Date: 20110310
  Receipt Date: 20110202
  Transmission Date: 20110831
  Serious: Yes (Other)
  Sender: FDA-Public Use
  Company Number: AT-ASTELLAS-2011EU000603

PATIENT
  Age: 29 Year
  Sex: Female

DRUGS (4)
  1. INFLIXIMAB [Suspect]
     Indication: INTESTINAL TRANSPLANT
     Dosage: UNK
     Route: 065
  2. TACROLIMUS [Suspect]
     Indication: INTESTINAL TRANSPLANT
     Dosage: UNK
     Route: 065
  3. CORTICOSTEROID NOS [Suspect]
     Indication: INTESTINAL TRANSPLANT
     Dosage: UNK
     Route: 065
  4. THYMOGLOBULIN [Suspect]
     Indication: INTESTINAL TRANSPLANT
     Dosage: UNK
     Route: 065

REACTIONS (6)
  - OFF LABEL USE [None]
  - DRUG INEFFECTIVE [None]
  - BRONCHOPULMONARY ASPERGILLOSIS [None]
  - CYTOMEGALOVIRUS GASTROINTESTINAL INFECTION [None]
  - TRANSPLANT REJECTION [None]
  - DRUG LEVEL DECREASED [None]
